FAERS Safety Report 7293433-X (Version None)
Quarter: 2011Q1

REPORT INFORMATION
  Report Type: 
  Country: None (occurrence: None)
  Receive Date: 20110215
  Receipt Date: 20110208
  Transmission Date: 20110831
  Serious: Yes (Hospitalization, Other)
  Sender: FDA-Public Use
  Company Number: FR-ABBOTT-11P-056-0703755-00

PATIENT
  Sex: Male

DRUGS (12)
  1. ACETAMINOPHEN [Concomitant]
     Indication: PRODUCT USED FOR UNKNOWN INDICATION
  2. MONOZECLAR [Suspect]
     Indication: BRONCHITIS
     Route: 048
     Dates: start: 20101202
  3. PREVISCAN [Interacting]
     Indication: PORTAL VEIN THROMBOSIS
     Route: 048
     Dates: start: 20100423, end: 20101208
  4. PREDNISONE [Interacting]
     Indication: BRONCHITIS
     Route: 048
     Dates: start: 20101202
  5. NISISCO [Concomitant]
     Indication: PRODUCT USED FOR UNKNOWN INDICATION
     Dosage: 80/12.5 MG
     Route: 048
  6. AVLOCARDYL ER [Concomitant]
     Indication: PRODUCT USED FOR UNKNOWN INDICATION
     Route: 048
  7. FUROSEMIDE [Concomitant]
     Indication: PRODUCT USED FOR UNKNOWN INDICATION
     Route: 048
  8. PREVISCAN [Interacting]
     Indication: THROMBOSIS
     Route: 048
     Dates: start: 20101213, end: 20101220
  9. ALLOPURINOL [Concomitant]
     Indication: PRODUCT USED FOR UNKNOWN INDICATION
     Route: 048
  10. SPIRONOLACTONE [Concomitant]
     Indication: PRODUCT USED FOR UNKNOWN INDICATION
     Dosage: 1/2-DOSAGE FORM
     Route: 048
  11. NOVONORM [Concomitant]
     Indication: PRODUCT USED FOR UNKNOWN INDICATION
  12. PREVISCAN [Interacting]
     Indication: MESENTERIC ARTERY THROMBOSIS

REACTIONS (11)
  - ABDOMINAL DISTENSION [None]
  - DRUG INTERACTION [None]
  - COLLATERAL CIRCULATION [None]
  - BACK PAIN [None]
  - PULSE ABSENT [None]
  - ANAEMIA [None]
  - INTERNATIONAL NORMALISED RATIO INCREASED [None]
  - OVERDOSE [None]
  - FALL [None]
  - OEDEMA PERIPHERAL [None]
  - DISORIENTATION [None]
